FAERS Safety Report 24531011 (Version 1)
Quarter: 2024Q4

REPORT INFORMATION
  Report Type: Spontaneous
  Country: US (occurrence: US)
  Receive Date: 20241021
  Receipt Date: 20241021
  Transmission Date: 20250115
  Serious: No
  Sender: ASTELLAS
  Company Number: US-ASTELLAS-2024-AER-013301

PATIENT
  Age: 77 Year
  Sex: Male
  Weight: 85 kg

DRUGS (4)
  1. XTANDI [Suspect]
     Active Substance: ENZALUTAMIDE
     Indication: Prostate cancer metastatic
     Dosage: 4 TABLETS
     Route: 048
     Dates: start: 202401, end: 2024
  2. XTANDI [Suspect]
     Active Substance: ENZALUTAMIDE
     Dosage: 4 TABLETS
     Route: 048
     Dates: start: 202410
  3. TALZENNA [Suspect]
     Active Substance: TALAZOPARIB TOSYLATE
     Indication: Prostate cancer metastatic
     Route: 048
     Dates: start: 202401, end: 2024
  4. TALZENNA [Suspect]
     Active Substance: TALAZOPARIB TOSYLATE
     Route: 048
     Dates: start: 202410

REACTIONS (2)
  - Dizziness [Recovered/Resolved]
  - Decreased activity [Recovered/Resolved]
